FAERS Safety Report 8361530-3 (Version None)
Quarter: 2012Q2

REPORT INFORMATION
  Report Type: 
  Country: None (occurrence: None)
  Receive Date: 20120515
  Receipt Date: 20120502
  Transmission Date: 20120825
  Serious: Yes (Hospitalization)
  Sender: FDA-Public Use
  Company Number: SE-ELI_LILLY_AND_COMPANY-SE201204000362

PATIENT
  Age: 46 Year
  Sex: Female

DRUGS (4)
  1. CYMBALTA [Suspect]
     Indication: DEPRESSION
     Dosage: 90 MG, UNK
     Route: 048
     Dates: start: 20111101
  2. OXAZEPAM [Concomitant]
     Indication: ANXIETY
     Dosage: U
  3. PROPAVAN [Concomitant]
     Indication: SLEEP DISORDER
     Dosage: 25 MG, UNK
  4. CYMBALTA [Suspect]
     Dosage: 120 MG, UNK
     Route: 048

REACTIONS (2)
  - AMNESIA [None]
  - DISORIENTATION [None]
